FAERS Safety Report 4310998-8 (Version None)
Quarter: 2004Q1

REPORT INFORMATION
  Report Type: 
  Country: None (occurrence: None)
  Receive Date: 20040302
  Receipt Date: 20040224
  Transmission Date: 20041129
  Serious: Yes (Death, Life-Threatening, Hospitalization, Other)
  Sender: FDA-Public Use
  Company Number: HQWYE011305JAN04

PATIENT
  Age: 12 Year
  Sex: Male
  Weight: 59.8 kg

DRUGS (9)
  1. RAPAMUNE [Suspect]
     Indication: PROPHYLAXIS AGAINST TRANSPLANT REJECTION
     Dosage: 4 MG 1X PER 1 DAY, ORAL
     Route: 048
     Dates: start: 20030204
  2. PREDNISONE [Suspect]
     Indication: PROPHYLAXIS AGAINST TRANSPLANT REJECTION
     Dosage: 9 MG 1 X PER 1 DAY, ORAL
     Route: 048
     Dates: start: 20030801
  3. PROGRAF [Suspect]
     Indication: PROPHYLAXIS AGAINST TRANSPLANT REJECTION
     Dosage: 6 MG EVERY AM AND 5 MG EVERY PM, ORAL
     Route: 048
     Dates: start: 20030203
  4. BACTRIM DS [Concomitant]
  5. CYTOVENE [Concomitant]
  6. ZANTAC [Concomitant]
  7. NORVASC [Concomitant]
  8. LASIX [Concomitant]
  9. HUMULIN N [Concomitant]

REACTIONS (18)
  - BLOOD CREATINE INCREASED [None]
  - COUGH [None]
  - CYTOMEGALOVIRUS ANTIBODY POSITIVE [None]
  - DYSPNOEA [None]
  - EPSTEIN-BARR VIRUS ANTIBODY POSITIVE [None]
  - HAEMATOCRIT DECREASED [None]
  - HAEMOGLOBIN DECREASED [None]
  - HEART RATE INCREASED [None]
  - LARYNGITIS [None]
  - LOWER RESPIRATORY TRACT INFECTION [None]
  - NAUSEA [None]
  - OBSTRUCTIVE AIRWAYS DISORDER [None]
  - PHARYNGOLARYNGEAL PAIN [None]
  - PULSE ABSENT [None]
  - PYREXIA [None]
  - STRIDOR [None]
  - VIRAL INFECTION [None]
  - VOMITING [None]
